FAERS Safety Report 14563741 (Version 1)
Quarter: 2018Q1

REPORT INFORMATION
  Report Type: Spontaneous
  Country: US (occurrence: US)
  Receive Date: 20180222
  Receipt Date: 20180222
  Transmission Date: 20180509
  Serious: No
  Sender: FDA-Public Use
  Company Number: US-MYLANLABS-2018M1011543

PATIENT
  Sex: Male

DRUGS (1)
  1. GLATIRAMER MYLAN [Suspect]
     Active Substance: GLATIRAMER
     Indication: PRODUCT USED FOR UNKNOWN INDICATION
     Dosage: UNK
     Route: 058

REACTIONS (3)
  - Local reaction [Unknown]
  - Injection site swelling [Not Recovered/Not Resolved]
  - Injection site erythema [Unknown]
